FAERS Safety Report 4672992-7 (Version None)
Quarter: 2005Q2

REPORT INFORMATION
  Report Type: 
  Country: None (occurrence: None)
  Receive Date: 20050523
  Receipt Date: 20050509
  Transmission Date: 20051028
  Serious: Yes (Hospitalization, Other)
  Sender: FDA-Public Use
  Company Number: 2005047301

PATIENT
  Sex: Male

DRUGS (3)
  1. TOLTERODINE TARTRATE [Suspect]
     Indication: ILL-DEFINED DISORDER
     Dosage: 2 MG (2 MG, 1 IN 1 D), ORAL
     Route: 048
     Dates: start: 20050225
  2. PREDNISONE [Concomitant]
  3. ENALAPRIL MALEATE [Concomitant]

REACTIONS (6)
  - CEREBRAL INFARCTION [None]
  - CEREBRAL ISCHAEMIA [None]
  - DIPLOPIA [None]
  - DIZZINESS [None]
  - FALL [None]
  - TRANSIENT ISCHAEMIC ATTACK [None]
